FAERS Safety Report 6202263-9 (Version None)
Quarter: 2009Q2

REPORT INFORMATION
  Report Type: 
  Country: None (occurrence: None)
  Receive Date: 20090526
  Receipt Date: 20090519
  Transmission Date: 20091009
  Serious: Yes (Other)
  Sender: FDA-Public Use
  Company Number: US-AVENTIS-200913301US

PATIENT
  Sex: Male

DRUGS (3)
  1. LANTUS [Suspect]
     Route: 058
     Dates: start: 20070201
  2. NOVOLOG [Concomitant]
     Dosage: DOSE: PER SLIDING SCALE
  3. PANTOPRAZOLE SODIUM [Concomitant]

REACTIONS (5)
  - BLOOD GLUCOSE DECREASED [None]
  - FALL [None]
  - HAND FRACTURE [None]
  - HEADACHE [None]
  - HYPOGLYCAEMIC COMA [None]
